FAERS Safety Report 25900517 (Version 1)
Quarter: 2025Q4

REPORT INFORMATION
  Report Type: Spontaneous
  Country: US (occurrence: None)
  Receive Date: 20251008
  Receipt Date: 20251008
  Transmission Date: 20260118
  Serious: Yes (Hospitalization)
  Sender: FDA-CTU
  Company Number: None

PATIENT
  Age: 67 Year
  Sex: Female

DRUGS (18)
  1. MYCOPHENOLATE MOFETIL [Suspect]
     Active Substance: MYCOPHENOLATE MOFETIL
     Indication: Lung transplant
     Dosage: FREQUENCY : TWICE A DAY;?
     Route: 048
     Dates: start: 20240213
  2. TACROLIMUS [Suspect]
     Active Substance: TACROLIMUS
     Indication: Lung transplant
     Dosage: FREQUENCY : BEFORE MEALS;?
     Route: 048
     Dates: start: 20240213
  3. TACROLIMUS [Suspect]
     Active Substance: TACROLIMUS
     Dosage: FREQUENCY : AT BEDTIME;?
     Route: 048
     Dates: start: 20240213
  4. LOSARTAN POTASSIUM [Concomitant]
     Active Substance: LOSARTAN POTASSIUM
  5. ALBUTEROL 0.021%(0.63MG/3ML) 25X3ML [Concomitant]
  6. ATORVASTATIN [Concomitant]
     Active Substance: ATORVASTATIN
  7. BUSPIRONE 10MG TABLETS [Concomitant]
  8. ERGOCALCIFEROL 8000U/ML (D2) DROPS [Concomitant]
  9. GABAPENTIN [Concomitant]
     Active Substance: GABAPENTIN
  10. JANUVIA [Concomitant]
     Active Substance: SITAGLIPTIN PHOSPHATE
  11. MULTIVITAMIN ADULTS TABLETS 200S [Concomitant]
  12. MYCOPHENOLATE 200MG/ML SUSP 160ML [Concomitant]
  13. OXYCODONE 100MG/5ML SOLUTION 30ML [Concomitant]
  14. PANTOPRAZOLE 20MG TABLETS [Concomitant]
  15. PAROXETINE 10MG TABLETS [Concomitant]
  16. PREDNISONE [Concomitant]
     Active Substance: PREDNISONE
  17. SULFAMETHOX/TMP 400-80MG/5ML INJ [Concomitant]
  18. TACROLIMUS 1MG  CAPSULES [Concomitant]

REACTIONS (4)
  - Pneumonia [None]
  - Aspiration [None]
  - Dysstasia [None]
  - Gait disturbance [None]

NARRATIVE: CASE EVENT DATE: 20250914
